FAERS Safety Report 8791886 (Version 1)
Quarter: 2012Q4

REPORT INFORMATION
  Report Type: 
  Country: US (occurrence: US)
  Receive Date: 20120918
  Receipt Date: 20120918
  Transmission Date: 20130627
  Serious: Yes (Hospitalization, Other)
  Sender: FDA-Public Use
  Company Number: US-ELI_LILLY_AND_COMPANY-US201209003218

PATIENT
  Age: 66 Year
  Sex: Female

DRUGS (3)
  1. HUMULIN NPH [Suspect]
     Indication: DIABETES MELLITUS
     Dosage: UNK
     Dates: start: 2008
  2. HUMULIN NPH [Suspect]
     Dosage: UNK
  3. LANTUS [Concomitant]
     Dosage: UNK

REACTIONS (5)
  - Myocardial infarction [Unknown]
  - Drug hypersensitivity [Recovered/Resolved]
  - Oedema peripheral [Recovered/Resolved]
  - Mental impairment [Not Recovered/Not Resolved]
  - Mobility decreased [Not Recovered/Not Resolved]
